FAERS Safety Report 10879127 (Version 1)
Quarter: 2015Q1

REPORT INFORMATION
  Report Type: Spontaneous
  Country: US (occurrence: US)
  Receive Date: 20150302
  Receipt Date: 20150302
  Transmission Date: 20150721
  Serious: No
  Sender: FDA-Public Use
  Company Number: US-GLAXOSMITHKLINE-US2015009396

PATIENT
  Sex: Female

DRUGS (2)
  1. CARVEDILOL TABLET [Suspect]
     Active Substance: CARVEDILOL
     Indication: CARDIAC OPERATION
  2. CARVEDILOL TABLET [Suspect]
     Active Substance: CARVEDILOL
     Indication: HYPERTENSION
     Dosage: 25 MG, BID
     Route: 048

REACTIONS (1)
  - Palpitations [Recovered/Resolved]
